FAERS Safety Report 21919082 (Version 1)
Quarter: 2023Q1

REPORT INFORMATION
  Report Type: Spontaneous
  Country: US (occurrence: None)
  Receive Date: 20230126
  Receipt Date: 20230126
  Transmission Date: 20230418
  Serious: Yes (Hospitalization)
  Sender: FDA-Public Use
  Company Number: None

PATIENT
  Sex: Male

DRUGS (1)
  1. ADVATE [Suspect]
     Active Substance: ANTIHEMOPHILIC FACTOR, HUMAN RECOMBINANT
     Indication: Factor VIII deficiency
     Dosage: OTHER QUANTITY : 650 UNITS;?FREQUENCY : AS NEEDED;?
     Route: 042
     Dates: start: 20200904

REACTIONS (3)
  - Mouth haemorrhage [None]
  - Epistaxis [None]
  - Post procedural haemorrhage [None]
